FAERS Safety Report 9254760 (Version 1)
Quarter: 2013Q2

REPORT INFORMATION
  Report Type: Spontaneous
  Country: US (occurrence: US)
  Receive Date: 20130425
  Receipt Date: 20130425
  Transmission Date: 20140414
  Serious: No
  Sender: FDA-Public Use
  Company Number: US-TEVA-400605USA

PATIENT
  Age: 92 Year
  Sex: Female

DRUGS (2)
  1. TREANDA [Suspect]
  2. PREDNISONE [Concomitant]

REACTIONS (1)
  - Rash [Unknown]
